FAERS Safety Report 24246122 (Version 4)
Quarter: 2025Q2

REPORT INFORMATION
  Report Type: Report from Study
  Country: US (occurrence: US)
  Receive Date: 20240824
  Receipt Date: 20250425
  Transmission Date: 20250717
  Serious: Yes (Hospitalization, Other)
  Sender: TAKEDA
  Company Number: US-TAKEDA-US201824766

PATIENT
  Sex: Male
  Weight: 79.8 kg

DRUGS (16)
  1. HUMAN C1-ESTERASE INHIBITOR [Suspect]
     Active Substance: HUMAN C1-ESTERASE INHIBITOR
     Indication: Immune system disorder
  2. HUMAN C1-ESTERASE INHIBITOR [Suspect]
     Active Substance: HUMAN C1-ESTERASE INHIBITOR
  3. HUMAN C1-ESTERASE INHIBITOR [Suspect]
     Active Substance: HUMAN C1-ESTERASE INHIBITOR
  4. FIRAZYR [Suspect]
     Active Substance: ICATIBANT ACETATE
     Indication: Immune system disorder
  5. FIRAZYR [Suspect]
     Active Substance: ICATIBANT ACETATE
  6. TAKHZYRO [Suspect]
     Active Substance: LANADELUMAB-FLYO
     Indication: Immune system disorder
     Dosage: 300 MILLIGRAM, Q2WEEKS
     Dates: start: 20240211
  7. TAKHZYRO [Suspect]
     Active Substance: LANADELUMAB-FLYO
     Dosage: 300 MILLIGRAM, Q2WEEKS
  8. TAKHZYRO [Suspect]
     Active Substance: LANADELUMAB-FLYO
  9. SODIUM CHLORIDE [Concomitant]
     Active Substance: SODIUM CHLORIDE
     Indication: Product used for unknown indication
  10. STERILE WATER [Concomitant]
     Active Substance: WATER
     Indication: Product used for unknown indication
  11. EPINEPHRINE [Concomitant]
     Active Substance: EPINEPHRINE
     Indication: Product used for unknown indication
  12. XANAX [Concomitant]
     Active Substance: ALPRAZOLAM
     Indication: Product used for unknown indication
  13. AMBIEN [Concomitant]
     Active Substance: ZOLPIDEM TARTRATE
     Indication: Product used for unknown indication
  14. CELEXA [Concomitant]
     Active Substance: CITALOPRAM HYDROBROMIDE
     Indication: Product used for unknown indication
  15. VYVANSE [Concomitant]
     Active Substance: LISDEXAMFETAMINE DIMESYLATE
  16. OZEMPIC [Concomitant]
     Active Substance: SEMAGLUTIDE

REACTIONS (4)
  - Nephrolithiasis [Unknown]
  - Product dose omission issue [Unknown]
  - Sinusitis [Unknown]
  - Hereditary angioedema [Unknown]
